FAERS Safety Report 15647979 (Version 1)
Quarter: 2018Q4

REPORT INFORMATION
  Report Type: Spontaneous
  Country: US (occurrence: US)
  Receive Date: 20181122
  Receipt Date: 20181122
  Transmission Date: 20190205
  Serious: No
  Sender: FDA-Public Use
  Company Number: US-3M HEALTH CARE-USEN-AZYJ6Z

PATIENT

DRUGS (2)
  1. DURAPREP [Suspect]
     Active Substance: IODINE POVACRYLEX\ISOPROPYL ALCOHOL
     Indication: PREOPERATIVE CARE
     Dosage: 26 ML MILLILITRE(S), SINGLE USE
     Route: 061
     Dates: start: 20180531
  2. ALCOHOL. [Concomitant]
     Active Substance: ALCOHOL

REACTIONS (3)
  - Blister [Recovered/Resolved]
  - Skin exfoliation [Recovered/Resolved]
  - Skin burning sensation [Recovered/Resolved]

NARRATIVE: CASE EVENT DATE: 20180531
